FAERS Safety Report 16870231 (Version 2)
Quarter: 2019Q4

REPORT INFORMATION
  Report Type: Spontaneous
  Country: IE (occurrence: IE)
  Receive Date: 20190930
  Receipt Date: 20191008
  Transmission Date: 20200122
  Serious: Yes (Hospitalization)
  Sender: FDA-Public Use
  Company Number: IE-NOVOPROD-678767

PATIENT
  Age: 61 Year
  Sex: Male
  Weight: 89 kg

DRUGS (6)
  1. APROVEL [Concomitant]
     Active Substance: IRBESARTAN
     Indication: HYPERTENSION
     Dosage: 300 MG
     Route: 065
  2. OZEMPIC [Suspect]
     Active Substance: SEMAGLUTIDE
     Dosage: 0.50 MG, QW
     Route: 065
     Dates: start: 201812, end: 201901
  3. GLUCOPHAGE [Concomitant]
     Active Substance: METFORMIN HYDROCHLORIDE
     Dosage: 1 G
     Route: 065
  4. DIAMICRON [Concomitant]
     Active Substance: GLICLAZIDE
     Dosage: 60 MG
     Route: 065
  5. OZEMPIC [Suspect]
     Active Substance: SEMAGLUTIDE
     Indication: WEIGHT CONTROL
     Dosage: 0.25 MG, QW
     Route: 065
  6. OZEMPIC [Suspect]
     Active Substance: SEMAGLUTIDE
     Indication: TYPE 2 DIABETES MELLITUS
     Dosage: 0.25 MG, QW
     Route: 065
     Dates: start: 201811

REACTIONS (8)
  - Increased appetite [Unknown]
  - Bowel movement irregularity [Unknown]
  - Decreased immune responsiveness [Unknown]
  - Malaise [Not Recovered/Not Resolved]
  - Lethargy [Unknown]
  - Urinary tract infection staphylococcal [Unknown]
  - Renal abscess [Unknown]
  - Viral infection [Unknown]
